FAERS Safety Report 5407018-0 (Version None)
Quarter: 2007Q3

REPORT INFORMATION
  Report Type: 
  Country: None (occurrence: None)
  Receive Date: 20070803
  Receipt Date: 20070803
  Transmission Date: 20080115
  Serious: Yes (Hospitalization)
  Sender: FDA-Public Use
  Company Number: None

PATIENT
  Age: 59 Year
  Sex: Male

DRUGS (1)
  1. WARFARIN SODIUM [Suspect]
     Dosage: 4MG EVERY DAY PO
     Route: 048
     Dates: start: 19990308

REACTIONS (4)
  - DRUG INTERACTION [None]
  - HAEMORRHAGE URINARY TRACT [None]
  - INJURY [None]
  - INTERNATIONAL NORMALISED RATIO INCREASED [None]
